FAERS Safety Report 9408423 (Version 1)
Quarter: 2013Q3

REPORT INFORMATION
  Report Type: Spontaneous
  Country: US (occurrence: US)
  Receive Date: 20130718
  Receipt Date: 20130718
  Transmission Date: 20140515
  Serious: Yes (Other)
  Sender: FDA-Public Use
  Company Number: US-GLAXOSMITHKLINE-A1033174A

PATIENT
  Age: 18 Year
  Sex: Female

DRUGS (4)
  1. BENLYSTA [Suspect]
     Indication: SYSTEMIC LUPUS ERYTHEMATOSUS
     Dosage: 120MG CYCLIC
     Route: 042
     Dates: start: 20130201
  2. SOLUMEDROL [Concomitant]
  3. BENADRYL [Concomitant]
  4. TYLENOL [Concomitant]

REACTIONS (11)
  - Systemic lupus erythematosus [Unknown]
  - Migraine [Recovered/Resolved]
  - Arthralgia [Unknown]
  - Fatigue [Unknown]
  - Headache [Unknown]
  - Butterfly rash [Unknown]
  - Pyrexia [Recovered/Resolved]
  - Ocular hyperaemia [Recovered/Resolved]
  - Eye swelling [Recovered/Resolved]
  - Eye pain [Recovered/Resolved]
  - Eye discharge [Recovered/Resolved]
